FAERS Safety Report 25585088 (Version 6)
Quarter: 2025Q4

REPORT INFORMATION
  Report Type: Spontaneous
  Country: US (occurrence: US)
  Receive Date: 20250721
  Receipt Date: 20251217
  Transmission Date: 20260118
  Serious: Yes (Other)
  Sender: BAYER HEALTHCARE PHARMACEUTICALS INC.
  Company Number: US-BAYER-2025A092853

PATIENT
  Age: 33 Year
  Sex: Male

DRUGS (11)
  1. JIVI [Suspect]
     Active Substance: DAMOCTOCOG ALFA PEGOL
     Indication: Factor VIII deficiency
     Dosage: 2000 IU
     Route: 042
     Dates: start: 202303
  2. JIVI [Suspect]
     Active Substance: DAMOCTOCOG ALFA PEGOL
     Indication: Prophylaxis
     Dosage: 1 UNKNOWN DOSE USED TO TREAT AN ACTIVE BLEED
     Route: 042
     Dates: start: 202507, end: 202507
  3. JIVI [Suspect]
     Active Substance: DAMOCTOCOG ALFA PEGOL
     Indication: Haemophilia
     Dosage: 2800 IU, TIW-INFUSE 2800 UNITS (2520-3080)
     Route: 042
  4. JIVI [Suspect]
     Active Substance: DAMOCTOCOG ALFA PEGOL
     Indication: Factor VIII deficiency
     Dosage: 2 DF
     Route: 042
  5. JIVI [Suspect]
     Active Substance: DAMOCTOCOG ALFA PEGOL
     Indication: Factor VIII deficiency
     Dosage: STRENGTH: 500; INFUSED 800 UNIT
     Route: 042
     Dates: start: 202303
  6. JIVI [Suspect]
     Active Substance: DAMOCTOCOG ALFA PEGOL
     Indication: Factor VIII deficiency
     Dosage: STRENGTH: 2000; INFUSED 2000 UNIT
     Route: 042
     Dates: start: 202303
  7. JIVI [Suspect]
     Active Substance: DAMOCTOCOG ALFA PEGOL
     Indication: Factor VIII deficiency
     Dosage: 2 DF
     Route: 042
  8. JIVI [Suspect]
     Active Substance: DAMOCTOCOG ALFA PEGOL
     Indication: Factor VIII deficiency
     Dosage: STRENGTH: 2000; INFUSE 2800 UNITS (2520- 3080) SLOW IV PUSH 2 TIMES A WEEK ON MONDAY AND THURSDAY AN
     Route: 042
  9. JIVI [Suspect]
     Active Substance: DAMOCTOCOG ALFA PEGOL
     Indication: Factor VIII deficiency
     Dosage: 2 DF
     Route: 042
     Dates: start: 201611
  10. JIVI [Suspect]
     Active Substance: DAMOCTOCOG ALFA PEGOL
     Indication: Factor VIII deficiency
     Dosage: 4 DF
     Route: 042
     Dates: start: 201611
  11. JIVI [Suspect]
     Active Substance: DAMOCTOCOG ALFA PEGOL
     Indication: Factor VIII deficiency
     Dosage: INFUSE 2800 UNITS (2520-3080) SLOW IV PUSH 2 TIMES A WEEK ON MONDAY AND THURSDAY AND AS NEEDED UNTIL
     Route: 042
     Dates: start: 201611

REACTIONS (12)
  - Traumatic haemorrhage [Recovering/Resolving]
  - Limb injury [None]
  - Haemorrhage [None]
  - Haemarthrosis [None]
  - Haemarthrosis [None]
  - Haemarthrosis [None]
  - Haemarthrosis [None]
  - Arthralgia [None]
  - Haemorrhage [None]
  - Haemorrhage [None]
  - Haemorrhage [None]
  - Haemorrhage [None]

NARRATIVE: CASE EVENT DATE: 20250701
